FAERS Safety Report 12807609 (Version 1)
Quarter: 2016Q4

REPORT INFORMATION
  Report Type: Spontaneous
  Country: US (occurrence: US)
  Receive Date: 20161004
  Receipt Date: 20161004
  Transmission Date: 20170207
  Serious: No
  Sender: FDA-Public Use
  Company Number: US-AMGEN-USASP2016014008

PATIENT
  Age: 65 Year
  Sex: Female
  Weight: 40.82 kg

DRUGS (1)
  1. XGEVA [Suspect]
     Active Substance: DENOSUMAB
     Indication: METASTASES TO SPINE
     Dosage: UNK, UNK
     Route: 065

REACTIONS (1)
  - Bone pain [Unknown]
